FAERS Safety Report 9870970 (Version 1)
Quarter: 2014Q1

REPORT INFORMATION
  Report Type: Spontaneous
  Country: US (occurrence: US)
  Receive Date: 20140205
  Receipt Date: 20140205
  Transmission Date: 20141002
  Serious: No
  Sender: FDA-Public Use
  Company Number: US-GILEAD-2014-0093355

PATIENT
  Age: 76 Year
  Sex: Male

DRUGS (2)
  1. SOVALDI [Suspect]
     Indication: HEPATITIS C
     Dosage: UNK
     Route: 065
     Dates: start: 20140121, end: 20140128
  2. RIBAVIRIN [Concomitant]

REACTIONS (2)
  - Visual impairment [Unknown]
  - Headache [Unknown]
